FAERS Safety Report 23577044 (Version 2)
Quarter: 2024Q1

REPORT INFORMATION
  Report Type: Other
  Country: US (occurrence: US)
  Receive Date: 20240228
  Receipt Date: 20240311
  Transmission Date: 20240410
  Serious: No
  Sender: FDA-Public Use
  Company Number: US-TRAVERE-2024TVT00181

PATIENT
  Age: 76 Year
  Sex: Female

DRUGS (6)
  1. FILSPARI [Suspect]
     Active Substance: SPARSENTAN
     Indication: IgA nephropathy
     Dosage: 1 TIME A DAY FOR DAYS 1-14
     Route: 048
     Dates: start: 20240206
  2. FILSPARI [Suspect]
     Active Substance: SPARSENTAN
     Indication: Haematuria
     Dosage: 2 TABLETS BY MOUTH 1 TIME A DAY ON DAYS 15-30.
     Route: 048
     Dates: start: 202402
  3. ALLOPURINOL [Concomitant]
     Active Substance: ALLOPURINOL
  4. ATORVASTATIN CALCIUM [Concomitant]
     Active Substance: ATORVASTATIN CALCIUM
  5. ASPIRIN [Concomitant]
     Active Substance: ASPIRIN
  6. DAPAGLIFLOZIN [Concomitant]
     Active Substance: DAPAGLIFLOZIN

REACTIONS (4)
  - Rash papular [Unknown]
  - Headache [Unknown]
  - Ligament sprain [Unknown]
  - Nausea [Unknown]

NARRATIVE: CASE EVENT DATE: 20240206
